FAERS Safety Report 14282425 (Version 5)
Quarter: 2018Q4

REPORT INFORMATION
  Report Type: Spontaneous
  Country: ES (occurrence: ES)
  Receive Date: 20171213
  Receipt Date: 20181218
  Transmission Date: 20190204
  Serious: Yes (Death)
  Sender: FDA-Public Use
  Company Number: ES-PFIZER INC-2017529039

PATIENT
  Age: 89 Year
  Sex: Female

DRUGS (4)
  1. QUETIAPINA [Interacting]
     Active Substance: QUETIAPINE
     Indication: MIXED DEMENTIA
     Dosage: 100 MG, 1X/DAY
     Route: 048
     Dates: start: 201704
  2. OMEPRAZOLE. [Interacting]
     Active Substance: OMEPRAZOLE
     Indication: PROPHYLAXIS AGAINST GASTROINTESTINAL ULCER
     Dosage: 20 MG, 1X/DAY
     Route: 048
     Dates: start: 2017
  3. TRANGOREX [Suspect]
     Active Substance: AMIODARONE HYDROCHLORIDE
     Indication: ARRHYTHMIA
     Dosage: 100 MG, 1X/DAY (EXCEPT THURSDAYS AND SUNDAYS)
     Route: 048
     Dates: start: 2017
  4. DIFLUCAN [Interacting]
     Active Substance: FLUCONAZOLE
     Indication: ORAL CANDIDIASIS
     Dosage: 2.5 ML, DAILY
     Route: 048
     Dates: start: 201704

REACTIONS (2)
  - Drug interaction [Fatal]
  - Cardiac failure [Fatal]

NARRATIVE: CASE EVENT DATE: 201705
